FAERS Safety Report 17730911 (Version 2)
Quarter: 2020Q4

REPORT INFORMATION
  Report Type: Spontaneous
  Country: NL (occurrence: NL)
  Receive Date: 20200430
  Receipt Date: 20201020
  Transmission Date: 20210113
  Serious: Yes (Other)
  Sender: FDA-Public Use
  Company Number: NL-MYLANLABS-2020M1042086

PATIENT
  Sex: Female

DRUGS (4)
  1. MORFINE HCL RETARD MYLAN 30 MG, TABLETTEN MET VERLENGDE AFGIFTE [Suspect]
     Active Substance: MORPHINE HYDROCHLORIDE
     Indication: PAIN
     Dosage: 60 MILLIGRAM, QD
  2. MORPHINE [Suspect]
     Active Substance: MORPHINE
     Indication: PAIN
     Dosage: 1 DF, QD
     Route: 065
  3. MORPHINE [Suspect]
     Active Substance: MORPHINE
     Dosage: 2 DF, QD
     Route: 065
  4. OXYCODONE [Suspect]
     Active Substance: OXYCODONE
     Indication: SKIN ULCER
     Dosage: 20 MG, BID
     Route: 065
     Dates: start: 2018

REACTIONS (7)
  - Dementia [Not Recovered/Not Resolved]
  - Hypersomnia [Unknown]
  - Fall [Unknown]
  - Product use in unapproved indication [Unknown]
  - Confusional state [Unknown]
  - Feeling abnormal [Unknown]
  - Off label use [Unknown]

NARRATIVE: CASE EVENT DATE: 20190629
